FAERS Safety Report 23944721 (Version 1)
Quarter: 2024Q2

REPORT INFORMATION
  Report Type: Spontaneous
  Country: FR (occurrence: FR)
  Receive Date: 20240606
  Receipt Date: 20240606
  Transmission Date: 20240715
  Serious: Yes (Hospitalization, Other)
  Sender: FDA-Public Use
  Company Number: None

PATIENT
  Age: 68 Year
  Sex: Female

DRUGS (2)
  1. OLIMEL E [Suspect]
     Active Substance: AMINO ACIDS\DEXTROSE\ELECTROLYTES NOS\SOYBEAN OIL
     Indication: Starvation
     Dosage: 1500 ML (MILLILITER) (VIA PARENTERAL ROUTE)
     Route: 050
     Dates: start: 20240417, end: 20240428
  2. OLIMEL E [Suspect]
     Active Substance: AMINO ACIDS\DEXTROSE\ELECTROLYTES NOS\SOYBEAN OIL
     Indication: Starvation
     Dosage: 1500 ML (MILLILITER)
     Route: 065
     Dates: start: 20240429, end: 20240430

REACTIONS (1)
  - Fungaemia [Not Recovered/Not Resolved]

NARRATIVE: CASE EVENT DATE: 20240426
